FAERS Safety Report 8804771 (Version 6)
Quarter: 2014Q2

REPORT INFORMATION
  Report Type: Spontaneous
  Country: US (occurrence: US)
  Receive Date: 20120924
  Receipt Date: 20140502
  Transmission Date: 20141212
  Serious: Yes (Hospitalization, Disabling, Other)
  Sender: FDA-Public Use
  Company Number: US-009507513-1209USA007683

PATIENT
  Sex: Female

DRUGS (3)
  1. FOSAMAX [Suspect]
     Indication: OSTEOPOROSIS
     Dosage: 10 MG, QD
     Route: 048
     Dates: start: 19980126, end: 2010
  2. FOSAMAX [Suspect]
     Indication: OSTEOPENIA
     Dosage: 70 MG, UNK
     Route: 048
  3. FOSAMAX PLUS D [Suspect]
     Dosage: 70 MG/2800IU, UNK
     Route: 048

REACTIONS (18)
  - Femur fracture [Recovered/Resolved]
  - Fall [Unknown]
  - Intramedullary rod insertion [Recovered/Resolved]
  - Infection [Unknown]
  - Packed red blood cell transfusion [Unknown]
  - Chronic lymphocytic leukaemia [Unknown]
  - Weight bearing difficulty [Unknown]
  - Pyrexia [Recovered/Resolved]
  - Rash [Recovered/Resolved]
  - Abdominal pain [Unknown]
  - Hypertension [Unknown]
  - Osteoarthritis [Unknown]
  - Pollakiuria [Unknown]
  - Dyspnoea [Unknown]
  - Neuropathy peripheral [Unknown]
  - Biopsy bone [Unknown]
  - Blood cholesterol increased [Unknown]
  - Urinary tract infection [Recovered/Resolved]
